FAERS Safety Report 15363339 (Version 1)
Quarter: 2018Q3

REPORT INFORMATION
  Report Type: Report from Study
  Country: FR (occurrence: FR)
  Receive Date: 20180907
  Receipt Date: 20180907
  Transmission Date: 20181010
  Serious: Yes (Hospitalization)
  Sender: FDA-Public Use
  Company Number: FR-PFIZER INC-2018353344

PATIENT
  Age: 56 Year
  Sex: Female
  Weight: 78 kg

DRUGS (7)
  1. POLARAMINE [Concomitant]
     Active Substance: DEXCHLORPHENIRAMINE MALEATE
     Indication: PREMEDICATION
     Dosage: 2 DF, 2X/WEEK
     Route: 042
     Dates: start: 20180522
  2. PARACETAMOL [Concomitant]
     Active Substance: ACETAMINOPHEN
     Indication: PREMEDICATION
     Dosage: 1 G, DAILY
     Route: 042
     Dates: start: 20180522
  3. LEVOTHYROX [Concomitant]
     Active Substance: LEVOTHYROXINE
     Route: 048
  4. NEORAL [Concomitant]
     Active Substance: CYCLOSPORINE
     Indication: BONE MARROW FAILURE
     Dosage: 600 MG, UNK
     Route: 048
     Dates: start: 20180522
  5. ATGAM [Suspect]
     Active Substance: EQUINE THYMOCYTE IMMUNE GLOBULIN
     Indication: APLASTIC ANAEMIA
     Dosage: 300 MG, UNK
     Dates: start: 20180522, end: 20180524
  6. ATGAM [Suspect]
     Active Substance: EQUINE THYMOCYTE IMMUNE GLOBULIN
     Dosage: UNK
     Dates: end: 20180529
  7. ROCEPHINE [Concomitant]
     Active Substance: CEFTRIAXONE SODIUM
     Indication: URINARY TRACT INFECTION
     Dosage: 2 G, DAILY
     Route: 042
     Dates: start: 20180523

REACTIONS (1)
  - Hepatocellular injury [Recovering/Resolving]

NARRATIVE: CASE EVENT DATE: 20180524
